FAERS Safety Report 9513412 (Version 1)
Quarter: 2013Q3

REPORT INFORMATION
  Report Type: Spontaneous
  Country: US (occurrence: US)
  Receive Date: 20130910
  Receipt Date: 20130910
  Transmission Date: 20140515
  Serious: No
  Sender: FDA-Public Use
  Company Number: US-TARO-2012P1054886

PATIENT
  Age: 59 Year
  Sex: Male

DRUGS (6)
  1. WARFARIN SODIUM TABLETS USP 5MG [Suspect]
     Route: 048
     Dates: start: 20120806
  2. GABAPENTIN [Concomitant]
  3. METOPROLOL [Concomitant]
  4. PLAVIX [Concomitant]
  5. FUROSEMIDE [Concomitant]
  6. METFORMIN [Concomitant]

REACTIONS (2)
  - Rash [Not Recovered/Not Resolved]
  - Papule [Not Recovered/Not Resolved]
